FAERS Safety Report 21151475 (Version 1)
Quarter: 2022Q3

REPORT INFORMATION
  Report Type: Spontaneous
  Country: FR (occurrence: FR)
  Receive Date: 20220730
  Receipt Date: 20220730
  Transmission Date: 20221027
  Serious: Yes (Death, Other)
  Sender: FDA-Public Use
  Company Number: FR-AFSSAPS-AM20221798

PATIENT
  Age: 62 Year
  Sex: Male
  Weight: 83 kg

DRUGS (7)
  1. FENOFIBRATE [Suspect]
     Active Substance: FENOFIBRATE
     Indication: Dyslipidaemia
     Route: 048
     Dates: end: 20220513
  2. AMLODIPINE BESYLATE [Suspect]
     Active Substance: AMLODIPINE BESYLATE
     Indication: Hypertension
     Route: 048
     Dates: end: 20220513
  3. KARDEGIC [Suspect]
     Active Substance: ASPIRIN DL-LYSINE
     Indication: Coronary artery disease
     Route: 048
     Dates: end: 20220513
  4. SPIKEVAX [Suspect]
     Active Substance: ELASOMERAN
     Indication: COVID-19 immunisation
     Dosage: R1
     Route: 030
     Dates: start: 20211206, end: 20211206
  5. NEBIVOLOL [Suspect]
     Active Substance: NEBIVOLOL
     Indication: Hypertension
     Route: 048
     Dates: end: 20220513
  6. VAXZEVRIA [Concomitant]
     Active Substance: AZD-1222
     Indication: Product used for unknown indication
     Dosage: D2
     Route: 030
     Dates: start: 202106, end: 202106
  7. VAXZEVRIA [Concomitant]
     Active Substance: AZD-1222
     Dosage: D1
     Route: 030
     Dates: start: 202104, end: 202104

REACTIONS (1)
  - Creutzfeldt-Jakob disease [Fatal]

NARRATIVE: CASE EVENT DATE: 20220101
